FAERS Safety Report 8887042 (Version 1)
Quarter: 2012Q4

REPORT INFORMATION
  Report Type: 
  Country: US (occurrence: US)
  Receive Date: 20121105
  Receipt Date: 20121105
  Transmission Date: 20130627
  Serious: No
  Sender: FDA-Public Use
  Company Number: US-ASTRAZENECA-2012SE81285

PATIENT
  Sex: Female

DRUGS (2)
  1. CRESTOR [Suspect]
     Route: 048
  2. STEROIDS [Concomitant]

REACTIONS (6)
  - Movement disorder [Unknown]
  - Inflammatory marker increased [Unknown]
  - Red blood cell sedimentation rate increased [Unknown]
  - Red blood cell count increased [Unknown]
  - Activities of daily living impaired [Unknown]
  - Myalgia [Unknown]
